FAERS Safety Report 17150067 (Version 1)
Quarter: 2019Q4

REPORT INFORMATION
  Report Type: Spontaneous
  Country: DE (occurrence: DE)
  Receive Date: 20191213
  Receipt Date: 20191213
  Transmission Date: 20200122
  Serious: Yes (Hospitalization)
  Sender: FDA-Public Use
  Company Number: DE-ACCORD-165371

PATIENT
  Age: 50 Year
  Sex: Male
  Weight: 103 kg

DRUGS (10)
  1. LEUCOVORIN. [Suspect]
     Active Substance: LEUCOVORIN
     Indication: PRODUCT USED FOR UNKNOWN INDICATION
     Dosage: NK MG / KG / KG,MOST RECENTLY ON?02.07.2018, SOLUTION FOR INJECTION / INFUSION
     Route: 042
  2. NIVOLUMAB [Suspect]
     Active Substance: NIVOLUMAB
     Indication: PRODUCT USED FOR UNKNOWN INDICATION
     Dosage: NK MG / KG / KG, MOST RECENTLY ON 02.07.2018, SOLUTION FOR INJECTION / INFUSION
     Route: 042
  3. PANTOPRAZOLE [Concomitant]
     Active Substance: PANTOPRAZOLE
     Dosage: 40 MG, 1-0-0-0
     Route: 048
  4. TRASTUZUMAB. [Suspect]
     Active Substance: TRASTUZUMAB
     Indication: PRODUCT USED FOR UNKNOWN INDICATION
     Dosage: NK MG / KG / KG,MOST RECENTLY ON?02.07.2018, SOLUTION FOR INJECTION / INFUSION
     Route: 042
  5. DEXAMETHASONE. [Concomitant]
     Active Substance: DEXAMETHASONE
     Dosage: 8 MG, 1-0-0-0, ONLY 1-2 DAYS AFTER CHEMO, TABLETS
     Route: 048
  6. BEPANTHEN [Concomitant]
     Dosage: NK ML, 1-1-1-0, STRENGTH  5%
     Route: 048
  7. ONDANSETRON [Concomitant]
     Active Substance: ONDANSETRON
     Dosage: 8 MG, AS NEEDED, UP TO 2X / DAY, TABLETS
     Route: 048
  8. FLUOROURACIL. [Suspect]
     Active Substance: FLUOROURACIL
     Indication: PRODUCT USED FOR UNKNOWN INDICATION
     Dosage: NK MG / KG / KG, MOST RECENTLY ON 02.07.2018, SOLUTION FOR INJECTION / INFUSION
     Route: 042
  9. SALVIATHYMOL N [Concomitant]
     Dosage: NK GTT, NEED, DROP
     Route: 048
  10. OXALIPLATIN. [Suspect]
     Active Substance: OXALIPLATIN
     Indication: PRODUCT USED FOR UNKNOWN INDICATION
     Dosage: NK MG / KG / KG,MOST RECENTLY ON?02.07.2018, SOLUTION FOR INJECTION /INFUSION
     Route: 042

REACTIONS (4)
  - Rash [Unknown]
  - Pyrexia [Unknown]
  - Hypotension [Unknown]
  - Tachycardia [Unknown]
